FAERS Safety Report 6235131-7 (Version None)
Quarter: 2009Q2

REPORT INFORMATION
  Report Type: 
  Country: None (occurrence: None)
  Receive Date: 20090615
  Receipt Date: 20090603
  Transmission Date: 20091009
  Serious: Yes (Hospitalization)
  Sender: FDA-Public Use
  Company Number: 2009-02057

PATIENT
  Age: 71 Year
  Sex: Male
  Weight: 100 kg

DRUGS (1)
  1. VELCADE [Suspect]
     Indication: MULTIPLE MYELOMA
     Dosage: 2.8 MG, INTRAVENOUS
     Route: 042
     Dates: start: 20070206, end: 20070405

REACTIONS (3)
  - ARTHRALGIA [None]
  - NEUROPATHY PERIPHERAL [None]
  - PERIORBITAL OEDEMA [None]
